FAERS Safety Report 9283889 (Version 1)
Quarter: 2013Q2

REPORT INFORMATION
  Report Type: Spontaneous
  Country: ES (occurrence: ES)
  Receive Date: 20130510
  Receipt Date: 20130510
  Transmission Date: 20140414
  Serious: Yes (Other)
  Sender: FDA-Public Use
  Company Number: PHHY2013ES045865

PATIENT
  Age: 67 Year
  Sex: Female
  Weight: 71 kg

DRUGS (8)
  1. LUDIOMIL [Suspect]
     Indication: DEPRESSION
     Dosage: 75 MG, QD
     Route: 048
     Dates: start: 2008
  2. FLUCONAZOLE [Interacting]
     Indication: ORAL CANDIDIASIS
     Dosage: 100 MG, QD
     Route: 048
     Dates: start: 20121204, end: 20121211
  3. FLUCONAZOLE [Interacting]
     Dosage: 100 MG, QD
     Route: 048
     Dates: start: 20130102, end: 20130112
  4. VENLAFAXINE [Interacting]
     Indication: DEPRESSION
     Dosage: 150 MG, QD
     Route: 048
     Dates: start: 2011
  5. ITRACONAZOLE [Interacting]
     Indication: ORAL CANDIDIASIS
     Dosage: 50 MG, QD
     Route: 048
     Dates: start: 20120821, end: 20120908
  6. LORAZEPAM [Interacting]
     Indication: DEPRESSION
     Dosage: 1 MG, QD
     Route: 048
     Dates: start: 2008
  7. FENTICONAZOLE NITRATE [Interacting]
     Indication: VULVOVAGINAL CANDIDIASIS
     Dosage: 600 MG, QD
     Route: 067
     Dates: start: 20121207, end: 20121207
  8. AMERIDE [Interacting]
     Indication: HYPERTENSION
     Dosage: 0.5 DF (5 MG AMILO AND 50 MG HCTZ), QD
     Route: 048
     Dates: start: 2008

REACTIONS (1)
  - Diabetes mellitus [Unknown]
